FAERS Safety Report 8802658 (Version 3)
Quarter: 2012Q4

REPORT INFORMATION
  Report Type: 
  Country: US (occurrence: US)
  Receive Date: 20120921
  Receipt Date: 20121130
  Transmission Date: 20130627
  Serious: No
  Sender: FDA-Public Use
  Company Number: US-PFIZER INC-2012059079

PATIENT
  Age: 56 Year
  Sex: Male
  Weight: 82.54 kg

DRUGS (10)
  1. CHANTIX [Suspect]
     Indication: SMOKING CESSATION THERAPY
     Dosage: 0.5 mg, UNK
     Route: 048
  2. CHANTIX [Suspect]
     Indication: SMOKING CESSATION THERAPY
     Dosage: 1 mg, 2x/day
     Route: 048
     Dates: start: 201112, end: 201209
  3. CHANTIX [Suspect]
     Dosage: 0.5 mg, 1x/day
     Route: 048
     Dates: start: 2012, end: 2012
  4. PERCOCET [Concomitant]
     Indication: PAIN
     Dosage: ^10 mg^
  5. PERCOCET [Concomitant]
     Dosage: ^15 mg^, 4x/day
     Dates: start: 2012
  6. SOMA [Concomitant]
     Indication: MUSCLE RELAXANT
     Dosage: UNK, 2x/day
  7. ZANTAC [Concomitant]
     Dosage: UNK
  8. CITALOPRAM [Concomitant]
     Dosage: UNK
  9. XANAX [Concomitant]
     Dosage: UNK
  10. AMITRIPTYLINE [Concomitant]
     Dosage: UNK

REACTIONS (6)
  - Drug ineffective [Unknown]
  - Drug tolerance [Unknown]
  - Nervousness [Unknown]
  - Tobacco user [Unknown]
  - Stress [Unknown]
  - Nervous system disorder [Not Recovered/Not Resolved]
